FAERS Safety Report 5467992-3 (Version None)
Quarter: 2007Q3

REPORT INFORMATION
  Report Type: 
  Country: None (occurrence: None)
  Receive Date: 20070925
  Receipt Date: 20070925
  Transmission Date: 20080115
  Serious: Yes (Other)
  Sender: FDA-Public Use
  Company Number: None

PATIENT
  Age: 49 Year
  Sex: Female

DRUGS (1)
  1. AQUAMEPHYTON [Suspect]
     Indication: INTERNATIONAL NORMALISED RATIO INCREASED
     Dosage: 10MG 1MG GRAM NOW IVSS
     Route: 042
     Dates: start: 20070625

REACTIONS (6)
  - BRADYCARDIA [None]
  - BURNING SENSATION [None]
  - CYANOSIS [None]
  - FLUSHING [None]
  - HYPERHIDROSIS [None]
  - INFUSION SITE WARMTH [None]
